FAERS Safety Report 4487933-5 (Version None)
Quarter: 2004Q4

REPORT INFORMATION
  Report Type: 
  Country: None (occurrence: None)
  Receive Date: 20041026
  Receipt Date: 20041008
  Transmission Date: 20050328
  Serious: Yes (Other)
  Sender: FDA-Public Use
  Company Number: USA040979177

PATIENT
  Age: 73 Year
  Sex: Female
  Weight: 40 kg

DRUGS (22)
  1. FORTEO [Suspect]
     Indication: OSTEOPOROSIS
     Dosage: 20 UG DAY
     Dates: start: 20030721
  2. IPRATROPIUM BROMIDE [Concomitant]
  3. XOPENEX [Concomitant]
  4. SEREVENT (SALMETEROL ZINAFOATE) [Concomitant]
  5. ALPRAZOLAM [Concomitant]
  6. PREDNISONE [Concomitant]
  7. PREDNISONE [Concomitant]
  8. SYNTHROID [Concomitant]
  9. SYNTHROID [Concomitant]
  10. NEXIUM [Concomitant]
  11. CALCIUM [Concomitant]
  12. CARAFATE [Concomitant]
  13. DILTIAZEM [Concomitant]
  14. PERCOCET [Concomitant]
  15. TRAZODONE HCL [Concomitant]
  16. OXYBUTYNIN [Concomitant]
  17. PAXIL [Concomitant]
  18. MEGESTROL [Concomitant]
  19. FERROUS SULFATE TAB [Concomitant]
  20. MAGNESIUM [Concomitant]
  21. DOCUSATE SODIUM [Concomitant]
  22. SENNA [Concomitant]

REACTIONS (3)
  - ABASIA [None]
  - DEMENTIA ALZHEIMER'S TYPE [None]
  - SPEECH DISORDER [None]
